FAERS Safety Report 5591846-5 (Version None)
Quarter: 2008Q1

REPORT INFORMATION
  Report Type: 
  Country: None (occurrence: None)
  Receive Date: 20080115
  Receipt Date: 20080110
  Transmission Date: 20080703
  Serious: Yes (Hospitalization)
  Sender: FDA-Public Use
  Company Number: B0502350A

PATIENT
  Age: 53 Year
  Sex: Female

DRUGS (9)
  1. DEROXAT [Suspect]
     Indication: DEPRESSION
     Dosage: 20MG PER DAY
     Route: 048
  2. HYTACAND [Suspect]
     Indication: HYPERTENSION
     Dosage: 1TAB PER DAY
     Route: 048
  3. DOMPERIDONE [Concomitant]
  4. CACIT VITAMINE D3 [Concomitant]
  5. LUTERAN [Concomitant]
  6. ESBERIVEN [Concomitant]
  7. IMOVANE [Concomitant]
  8. DERMESTRIL [Concomitant]
  9. LEXOMIL [Concomitant]

REACTIONS (6)
  - HYPOCHLORAEMIA [None]
  - HYPOKALAEMIA [None]
  - HYPONATRAEMIA [None]
  - NAUSEA [None]
  - VERTIGO [None]
  - VOMITING [None]
